FAERS Safety Report 11156209 (Version 1)
Quarter: 2015Q2

REPORT INFORMATION
  Report Type: Spontaneous
  Country: GB (occurrence: GB)
  Receive Date: 20150602
  Receipt Date: 20150602
  Transmission Date: 20150821
  Serious: Yes (Hospitalization)
  Sender: FDA-Public Use
  Company Number: GB-HOSPIRA-2880289

PATIENT
  Age: 77 Year
  Sex: Female
  Weight: 38 kg

DRUGS (5)
  1. CARBOPLATIN. [Suspect]
     Active Substance: CARBOPLATIN
     Indication: GASTRIC CANCER
     Dosage: DATE OF MOST RECENT DOSE?28 MAR 2013, DOSE: 310 MG
     Route: 042
     Dates: start: 20130213
  2. EPIRUBICIN HYDROCHLORIDE. [Suspect]
     Active Substance: EPIRUBICIN HYDROCHLORIDE
     Indication: GASTRIC CANCER
     Dosage: DATE OF MOST RECENT DOSE 28 MAR 2013, DOSE: 70 MG
     Route: 042
     Dates: start: 20130213
  3. CISPLATIN. [Suspect]
     Active Substance: CISPLATIN
     Indication: GASTRIC CANCER
     Dosage: DATE OF MOST RECENT DOSE?28 MAR 2013, DOSE: 310 MG
     Route: 042
     Dates: start: 20130213
  4. XELODA [Suspect]
     Active Substance: CAPECITABINE
     Indication: GASTRIC CANCER
     Dosage: DATE OF MOST RECENT DOSE?28 MAR 2013, DOSE: 27300 MG
     Route: 048
     Dates: start: 20130213
  5. AVASTIN [Concomitant]
     Active Substance: BEVACIZUMAB
     Indication: GASTRIC CANCER
     Dosage: DATE OF MOST RECENT DOSE?28 MAR 2013, DOSE: 7.5 MG
     Route: 042
     Dates: start: 20130213

REACTIONS (1)
  - Weight decreased [Not Recovered/Not Resolved]

NARRATIVE: CASE EVENT DATE: 20130408
